FAERS Safety Report 19797522 (Version 1)
Quarter: 2021Q3

REPORT INFORMATION
  Report Type: Spontaneous
  Country: DE (occurrence: DE)
  Receive Date: 20210907
  Receipt Date: 20210907
  Transmission Date: 20211014
  Serious: Yes (Hospitalization, Other)
  Sender: FDA-Public Use
  Company Number: DE-MICRO LABS LIMITED-ML2021-02215

PATIENT
  Age: 65 Year
  Sex: Female

DRUGS (3)
  1. ENALAPRIL 1A PHARMA 10 MG TABLETS [Suspect]
     Active Substance: ENALAPRIL MALEATE
     Route: 065
  2. DICLOFENAC SODIUM. [Suspect]
     Active Substance: DICLOFENAC SODIUM
     Indication: PRODUCT USED FOR UNKNOWN INDICATION
  3. SPIRONOLACTONE 1A PHARMA [Concomitant]
     Route: 065

REACTIONS (7)
  - Illness [Unknown]
  - Hypertension [Unknown]
  - Shock [Recovered/Resolved]
  - Hot flush [Unknown]
  - Mast cell activation syndrome [Recovered/Resolved]
  - Glaucoma [Unknown]
  - Circulatory collapse [Unknown]

NARRATIVE: CASE EVENT DATE: 2021
